FAERS Safety Report 25869149 (Version 1)
Quarter: 2025Q3

REPORT INFORMATION
  Report Type: Spontaneous
  Country: US (occurrence: None)
  Receive Date: 20250930
  Receipt Date: 20250930
  Transmission Date: 20251020
  Serious: Yes (Hospitalization)
  Sender: FDA-CTU
  Company Number: None

PATIENT
  Sex: Female

DRUGS (1)
  1. VYNDAMAX [Suspect]
     Active Substance: TAFAMIDIS
     Dosage: OTHER QUANTITY : TAKE 1 CAPSULE;?FREQUENCY : DAILY;?
     Route: 048
     Dates: start: 20250923

REACTIONS (1)
  - Infection [None]
